FAERS Safety Report 10635140 (Version 1)
Quarter: 2014Q4

REPORT INFORMATION
  Report Type: Spontaneous
  Country: US (occurrence: None)
  Receive Date: 20141121
  Receipt Date: 20141121
  Transmission Date: 20150529
  Serious: No
  Sender: FDA-Public Use
  Company Number: 163-10004-14070165

PATIENT
  Age: 59 Year
  Sex: Male
  Weight: 98.88 kg

DRUGS (9)
  1. METOPROLOL [Concomitant]
     Active Substance: METOPROLOL
  2. SUMATRIPTAN. [Concomitant]
     Active Substance: SUMATRIPTAN
  3. COUMADIN [Concomitant]
     Active Substance: WARFARIN SODIUM
  4. LISINOPRIL. [Concomitant]
     Active Substance: LISINOPRIL
  5. OTEZLA [Suspect]
     Active Substance: APREMILAST
     Indication: PSORIATIC ARTHROPATHY
     Route: 048
     Dates: start: 20140619
  6. SULFASALAZINE. [Concomitant]
     Active Substance: SULFASALAZINE
  7. GABAPENTIN. [Concomitant]
     Active Substance: GABAPENTIN
  8. NEXIUM [Concomitant]
     Active Substance: ESOMEPRAZOLE MAGNESIUM
  9. BUTRAN (BUPRENORPHINE) [Concomitant]

REACTIONS (8)
  - Upper respiratory tract infection [None]
  - Diarrhoea [None]
  - Pruritus [None]
  - Depression [None]
  - Abdominal pain upper [None]
  - Weight decreased [None]
  - Headache [None]
  - Nausea [None]

NARRATIVE: CASE EVENT DATE: 2014
